FAERS Safety Report 7235178-8 (Version None)
Quarter: 2011Q1

REPORT INFORMATION
  Report Type: 
  Country: None (occurrence: None)
  Receive Date: 20110120
  Receipt Date: 20110118
  Transmission Date: 20110831
  Serious: Yes (Other)
  Sender: FDA-Public Use
  Company Number: JP-PFIZER INC-2010130228

PATIENT
  Age: 39 Year
  Sex: Male

DRUGS (2)
  1. IDARUBICIN HCL [Suspect]
     Indication: ACUTE MYELOID LEUKAEMIA
  2. CYTARABINE [Suspect]
     Indication: ACUTE MYELOID LEUKAEMIA

REACTIONS (3)
  - FEBRILE NEUTROPENIA [None]
  - PYOMYOSITIS [None]
  - STAPHYLOCOCCAL INFECTION [None]
